FAERS Safety Report 7326350-7 (Version None)
Quarter: 2011Q1

REPORT INFORMATION
  Report Type: 
  Country: None (occurrence: None)
  Receive Date: 20110302
  Receipt Date: 20110223
  Transmission Date: 20110831
  Serious: Yes (Hospitalization)
  Sender: FDA-Public Use
  Company Number: Z0008025A

PATIENT
  Sex: Male
  Weight: 78.3 kg

DRUGS (1)
  1. CHLORAMBUCIL [Suspect]
     Dosage: 10MGM2 PER DAY
     Route: 048
     Dates: start: 20110106

REACTIONS (1)
  - NEUTROPENIC SEPSIS [None]
